FAERS Safety Report 9301254 (Version 1)
Quarter: 2013Q2

REPORT INFORMATION
  Report Type: Spontaneous
  Country: CA (occurrence: CA)
  Receive Date: 20130521
  Receipt Date: 20130521
  Transmission Date: 20140414
  Serious: Yes (Other)
  Sender: FDA-Public Use
  Company Number: 2013SP001420

PATIENT
  Age: 8 Year
  Sex: Male
  Weight: 36 kg

DRUGS (2)
  1. ALVESCO INHALATION AEROSOL [Suspect]
     Indication: ASTHMA
     Route: 055
     Dates: start: 20081022
  2. ZENHALE [Suspect]
     Indication: ASTHMA
     Route: 055
     Dates: start: 201204

REACTIONS (2)
  - Adrenal insufficiency [Not Recovered/Not Resolved]
  - Overdose [Unknown]
